FAERS Safety Report 15884312 (Version 1)
Quarter: 2019Q1

REPORT INFORMATION
  Report Type: Spontaneous
  Country: US (occurrence: US)
  Receive Date: 20190129
  Receipt Date: 20190129
  Transmission Date: 20190417
  Serious: No
  Sender: FDA-Public Use
  Company Number: US-BAYER-2019-021059

PATIENT
  Age: 68 Year
  Sex: Female
  Weight: 116 kg

DRUGS (1)
  1. CLARITIN-D 24 HOUR [Suspect]
     Active Substance: LORATADINE\PSEUDOEPHEDRINE SULFATE
     Dosage: UNK
     Route: 048
     Dates: start: 2009

REACTIONS (1)
  - Nasal dryness [Recovered/Resolved]

NARRATIVE: CASE EVENT DATE: 2009
